FAERS Safety Report 7495878-1 (Version None)
Quarter: 2011Q2

REPORT INFORMATION
  Report Type: 
  Country: None (occurrence: None)
  Receive Date: 20110523
  Receipt Date: 20110511
  Transmission Date: 20111010
  Serious: Yes (Other)
  Sender: FDA-Public Use
  Company Number: IT-AMGEN-ITASP2010001939

PATIENT
  Age: 79 Year
  Sex: Male

DRUGS (4)
  1. METHOTREXATE [Suspect]
     Indication: PSORIATIC ARTHROPATHY
     Dosage: 10 MG, QWK
     Route: 030
     Dates: start: 20090122, end: 20100927
  2. METHOTREXATE [Suspect]
     Dosage: 10 MG, QWK
     Route: 030
  3. ENBREL [Suspect]
     Indication: PSORIATIC ARTHROPATHY
     Dosage: 50 MG/KG, QWK
     Route: 058
     Dates: start: 20090122, end: 20100927
  4. ENBREL [Suspect]
     Dosage: 50 MG, QWK
     Route: 058

REACTIONS (3)
  - TRANSIENT ISCHAEMIC ATTACK [None]
  - APHASIA [None]
  - PARAESTHESIA [None]
